FAERS Safety Report 15482948 (Version 3)
Quarter: 2019Q2

REPORT INFORMATION
  Report Type: Spontaneous
  Country: US (occurrence: US)
  Receive Date: 20181010
  Receipt Date: 20190402
  Transmission Date: 20190711
  Serious: No
  Sender: FDA-Public Use
  Company Number: US-PFIZER INC-2018408641

PATIENT
  Age: 47 Year
  Sex: Female

DRUGS (6)
  1. NPH INSULIN [Suspect]
     Active Substance: INSULIN BEEF
     Dosage: UNK
  2. GLUCOTROL [Suspect]
     Active Substance: GLIPIZIDE
     Dosage: UNK
  3. GLUCOPHAGE [Suspect]
     Active Substance: METFORMIN HYDROCHLORIDE
     Dosage: UNK
  4. ACTOS [Suspect]
     Active Substance: PIOGLITAZONE HYDROCHLORIDE
     Dosage: UNK
  5. GLIPIZIDE. [Suspect]
     Active Substance: GLIPIZIDE
     Dosage: UNK
  6. NPH ILETIN II [Suspect]
     Active Substance: INSULIN BEEF/PORK
     Dosage: UNK

REACTIONS (1)
  - Drug hypersensitivity [Unknown]
